FAERS Safety Report 11464842 (Version 2)
Quarter: 2015Q4

REPORT INFORMATION
  Report Type: Spontaneous
  Country: GB (occurrence: GB)
  Receive Date: 20150906
  Receipt Date: 20151028
  Transmission Date: 20160304
  Serious: Yes (Hospitalization)
  Sender: FDA-Public Use
  Company Number: GB-ABBVIE-15P-167-1455185-00

PATIENT
  Age: 50 Year
  Sex: Female
  Weight: 87 kg

DRUGS (1)
  1. HUMIRA [Suspect]
     Active Substance: ADALIMUMAB
     Indication: PRODUCT USED FOR UNKNOWN INDICATION
     Route: 058
     Dates: start: 201507

REACTIONS (6)
  - Systemic lupus erythematosus rash [Recovered/Resolved]
  - Abdominal distension [Recovering/Resolving]
  - Headache [Recovered/Resolved]
  - Joint stiffness [Recovered/Resolved]
  - Lip swelling [Recovered/Resolved]
  - Arthralgia [Recovered/Resolved]

NARRATIVE: CASE EVENT DATE: 20150719
